FAERS Safety Report 4833970-8 (Version None)
Quarter: 2005Q4

REPORT INFORMATION
  Report Type: 
  Country: None (occurrence: None)
  Receive Date: 20051118
  Receipt Date: 20051118
  Transmission Date: 20060501
  Serious: Yes (Other)
  Sender: FDA-Public Use
  Company Number: None

PATIENT
  Age: 79 Year
  Sex: Male
  Weight: 52.2 kg

DRUGS (15)
  1. PROZAC [Suspect]
  2. CITALOPRAM HYDROBROMIDE [Concomitant]
  3. CASTOR OIL /PERUVIAN BALSAM/TRYPSIN SPRAY [Concomitant]
  4. RESOUCE FRUITBEV [Concomitant]
  5. ALBUTEROL SULFATE AND IPRATROPIUM BROMIDE [Concomitant]
  6. FERROUS S04 [Concomitant]
  7. ASCORBIC ACID [Concomitant]
  8. CALCIUM 500 MG/VITAMIN D [Concomitant]
  9. RABEPRAZOLE NA [Concomitant]
  10. CYANOCOBALAMIN [Concomitant]
  11. FLUNISOLIDE [Concomitant]
  12. MULTI-VITAMIN [Concomitant]
  13. SIMVASTATIN [Concomitant]
  14. SODIUM CHLORIDE [Concomitant]
  15. ABSORABASE [Concomitant]

REACTIONS (1)
  - PARKINSONISM [None]
